FAERS Safety Report 22285860 (Version 7)
Quarter: 2024Q2

REPORT INFORMATION
  Report Type: Report from Study
  Country: US (occurrence: US)
  Receive Date: 20230504
  Receipt Date: 20240514
  Transmission Date: 20240716
  Serious: Yes (Other)
  Sender: FDA-Public Use
  Company Number: US-ABBVIE-4749450

PATIENT
  Sex: Female

DRUGS (4)
  1. SKYRIZI [Suspect]
     Active Substance: RISANKIZUMAB-RZAA
     Indication: Psoriasis
     Dosage: LAST ADMIN DATE -2021
     Route: 058
     Dates: start: 20210402
  2. SKYRIZI [Suspect]
     Active Substance: RISANKIZUMAB-RZAA
     Route: 058
     Dates: start: 20130101
  3. SKYRIZI [Suspect]
     Active Substance: RISANKIZUMAB-RZAA
     Route: 058
     Dates: start: 20210909
  4. TOPIRAMATE [Suspect]
     Active Substance: TOPIRAMATE
     Indication: Metabolic disorder
     Route: 065

REACTIONS (13)
  - Cardiac operation [Unknown]
  - Psoriasis [Unknown]
  - Headache [Unknown]
  - Arteriosclerosis coronary artery [Unknown]
  - Weight increased [Unknown]
  - Cardiac operation [Recovered/Resolved]
  - Stress at work [Unknown]
  - Fluid retention [Unknown]
  - Therapeutic response shortened [Unknown]
  - Fatigue [Unknown]
  - Nausea [Unknown]
  - Sensitive skin [Unknown]
  - Dizziness [Unknown]

NARRATIVE: CASE EVENT DATE: 20200101
